FAERS Safety Report 9592283 (Version 1)
Quarter: 2013Q4

REPORT INFORMATION
  Report Type: Spontaneous
  Country: US (occurrence: US)
  Receive Date: 20131004
  Receipt Date: 20131004
  Transmission Date: 20140711
  Serious: No
  Sender: FDA-Public Use
  Company Number: US-009507513-1310USA002100

PATIENT
  Sex: Female

DRUGS (1)
  1. JUVISYNC [Suspect]
     Indication: DIABETES MELLITUS
     Dosage: UNK
     Route: 048

REACTIONS (1)
  - Myalgia [Unknown]
